FAERS Safety Report 13449812 (Version 1)
Quarter: 2017Q2

REPORT INFORMATION
  Report Type: Spontaneous
  Country: US (occurrence: US)
  Receive Date: 20170417
  Receipt Date: 20170417
  Transmission Date: 20170830
  Serious: No
  Sender: FDA-Public Use
  Company Number: US-BION-20160038

PATIENT
  Age: 74 Year
  Sex: Female

DRUGS (2)
  1. HIGH BLOOD PRESSURE MEDICATION (UNKNOWN) [Concomitant]
  2. ALEVE [Suspect]
     Active Substance: NAPROXEN SODIUM
     Indication: BACK PAIN
     Route: 048

REACTIONS (3)
  - Product quality issue [Unknown]
  - Poor quality drug administered [Not Recovered/Not Resolved]
  - Incorrect drug administration duration [Not Recovered/Not Resolved]
